FAERS Safety Report 8334674-X (Version None)
Quarter: 2012Q2

REPORT INFORMATION
  Report Type: 
  Country: None (occurrence: None)
  Receive Date: 20120503
  Receipt Date: 20110428
  Transmission Date: 20120825
  Serious: No
  Sender: FDA-Public Use
  Company Number: US-TEVA-2011002117

PATIENT
  Sex: Male

DRUGS (2)
  1. NUVIGIL [Suspect]
     Route: 048
  2. MULTI-VITAMIN [Concomitant]

REACTIONS (2)
  - CONTUSION [None]
  - EPISTAXIS [None]
